FAERS Safety Report 6278756-5 (Version None)
Quarter: 2009Q3

REPORT INFORMATION
  Report Type: 
  Country: None (occurrence: None)
  Receive Date: 20090721
  Receipt Date: 20090714
  Transmission Date: 20100115
  Serious: No
  Sender: FDA-Public Use
  Company Number: 2009008523

PATIENT
  Sex: Male

DRUGS (4)
  1. FENTORA [Suspect]
     Indication: BACK PAIN
     Dosage: 3200 MCG (800 MCG, 4 IN 1 D), BU
  2. FENTORA [Suspect]
     Indication: PAIN IN EXTREMITY
     Dosage: 3200 MCG (800 MCG, 4 IN 1 D), BU
  3. FENTANYL [Concomitant]
  4. OPANA [Concomitant]

REACTIONS (1)
  - DRUG PRESCRIBING ERROR [None]
